FAERS Safety Report 8517501-7 (Version None)
Quarter: 2012Q3

REPORT INFORMATION
  Report Type: 
  Country: None (occurrence: None)
  Receive Date: 20120718
  Receipt Date: 20120713
  Transmission Date: 20120928
  Serious: Yes (Other)
  Sender: FDA-Public Use
  Company Number: US-ROCHE-792254

PATIENT
  Sex: Male
  Weight: 93.07 kg

DRUGS (4)
  1. GLIPIZIDE [Concomitant]
     Indication: DIABETES MELLITUS
  2. ACCUTANE [Suspect]
     Dosage: 40 MG AND 60 MG
     Route: 048
     Dates: start: 19860105, end: 19870101
  3. ACCUTANE [Suspect]
     Indication: ACNE
     Route: 048
  4. METFORMIN HYDROCHLORIDE [Concomitant]
     Indication: DIABETES MELLITUS

REACTIONS (5)
  - DEPRESSION [None]
  - COLITIS ULCERATIVE [None]
  - EMOTIONAL DISTRESS [None]
  - INFLAMMATORY BOWEL DISEASE [None]
  - SLEEP DISORDER [None]
